FAERS Safety Report 9833545 (Version 1)
Quarter: 2014Q1

REPORT INFORMATION
  Report Type: Spontaneous
  Country: ES (occurrence: ES)
  Receive Date: 20140122
  Receipt Date: 20140122
  Transmission Date: 20141002
  Serious: Yes (Hospitalization)
  Sender: FDA-Public Use
  Company Number: ES-ROCHE-1331459

PATIENT
  Age: 35 Year
  Sex: Male

DRUGS (2)
  1. XENICAL [Suspect]
     Indication: PRODUCT USED FOR UNKNOWN INDICATION
     Route: 048
     Dates: start: 20130314, end: 20130319
  2. HEPATITIS B VIRUS VACCINE INACTIVATED [Suspect]
     Indication: IMMUNISATION
     Route: 030
     Dates: start: 20130319, end: 20130319

REACTIONS (3)
  - Thrombocytopenia [Recovered/Resolved]
  - Gingival bleeding [Recovered/Resolved]
  - Haematoma [Recovered/Resolved]
